FAERS Safety Report 9527529 (Version 1)
Quarter: 2013Q1

REPORT INFORMATION
  Report Type: Spontaneous
  Country: US (occurrence: None)
  Receive Date: 20130314
  Receipt Date: 20130314
  Transmission Date: 20140127
  Serious: No
  Sender: FDA-Public Use
  Company Number: 1212USA007944

PATIENT
  Age: 52 Year
  Sex: Female
  Weight: 67.1 kg

DRUGS (8)
  1. VICTRELIS (BOCEPREVIR) CAPSULE, 200MG [Suspect]
     Dosage: 4 CAPSULES (800 MG), THREE TIMES A DAY (EVERY 7-9 HOURS), ORAL
     Route: 048
  2. RIBAPAK [Suspect]
     Route: 048
  3. RIBAPAK [Suspect]
     Indication: HEPATITIS C
  4. PEGASYS [Suspect]
     Indication: HEPATITIS C
  5. LEVOTHROID (LEVOTHYROXINE SODIUM) [Concomitant]
  6. VITAMINS (UNSPECIFIED) (VITAMINS UNSPECIFIED) [Concomitant]
  7. CYANOCOBALAMIN [Concomitant]
  8. SYNTHROID (LEVOTHYROXINE SODIUM) [Concomitant]

REACTIONS (5)
  - Pain [None]
  - Fatigue [None]
  - Blood thyroid stimulating hormone abnormal [None]
  - Dysgeusia [None]
  - Haemoglobin decreased [None]
